FAERS Safety Report 10069645 (Version 1)
Quarter: 2014Q2

REPORT INFORMATION
  Report Type: Spontaneous
  Country: IT (occurrence: IT)
  Receive Date: 20140410
  Receipt Date: 20140410
  Transmission Date: 20141212
  Serious: Yes (Hospitalization)
  Sender: FDA-Public Use
  Company Number: IT-DRREDDYS-GER/ITL/14/0039380

PATIENT
  Age: 74 Year
  Sex: Male

DRUGS (2)
  1. AMLODIPINE [Suspect]
     Indication: HYPERTENSION
     Route: 048
     Dates: start: 20090101, end: 20140226
  2. AMLODIPINE [Suspect]
     Route: 048

REACTIONS (7)
  - Abdominal pain upper [Recovered/Resolved]
  - Vomiting [Recovered/Resolved]
  - Nausea [Recovered/Resolved]
  - Constipation [Recovered/Resolved]
  - Asthenia [Unknown]
  - Hyperpyrexia [Unknown]
  - Pleural effusion [Unknown]
